FAERS Safety Report 25931552 (Version 1)
Quarter: 2025Q4

REPORT INFORMATION
  Report Type: Spontaneous
  Country: EU (occurrence: EU)
  Receive Date: 20251016
  Receipt Date: 20251016
  Transmission Date: 20260117
  Serious: Yes (Hospitalization, Other)
  Sender: PFIZER
  Company Number: EU-PFIZER INC-PV202500121812

PATIENT
  Age: 38 Year
  Sex: Female

DRUGS (4)
  1. TRASTUZUMAB [Suspect]
     Active Substance: TRASTUZUMAB
     Indication: Breast cancer
     Dosage: 600 MG, CYCLIC (TOTAL 2 CYCLES)
     Route: 058
     Dates: start: 201807
  2. DOXORUBICIN HYDROCHLORIDE [Suspect]
     Active Substance: DOXORUBICIN HYDROCHLORIDE
     Indication: Breast cancer
     Dosage: 60 MG/M2, CYCLIC (4 CYCLES, TOTAL DOSE = 240 MG/M2)
     Route: 042
     Dates: start: 201807
  3. CYCLOPHOSPHAMIDE [Suspect]
     Active Substance: CYCLOPHOSPHAMIDE
     Indication: Breast cancer
     Dosage: 600 MG/M2, CYCLIC (4 CYCLES)
     Route: 042
     Dates: start: 201807
  4. PACLITAXEL [Suspect]
     Active Substance: PACLITAXEL
     Indication: Breast cancer
     Dosage: 80 MG/M2, CYCLIC (TOTAL 4 CYCLES)
     Dates: start: 201807

REACTIONS (3)
  - Cardiac failure chronic [Recovering/Resolving]
  - Heart failure with reduced ejection fraction [Recovering/Resolving]
  - Off label use [Unknown]

NARRATIVE: CASE EVENT DATE: 20180101
